FAERS Safety Report 24444390 (Version 2)
Quarter: 2024Q4

REPORT INFORMATION
  Report Type: Report from Study
  Country: US (occurrence: US)
  Receive Date: 20241016
  Receipt Date: 20241017
  Transmission Date: 20250114
  Serious: No
  Sender: ROCHE
  Company Number: US-ROCHE-2802467

PATIENT
  Age: 88 Year
  Sex: Female

DRUGS (7)
  1. RITUXAN [Suspect]
     Active Substance: RITUXIMAB
     Indication: Cryoglobulinaemia
     Route: 042
  2. TYLENOL EXTRA STRENGTH [Concomitant]
     Active Substance: ACETAMINOPHEN
     Dosage: AS NEEDED
     Route: 048
  3. NEURONTIN [Concomitant]
     Active Substance: GABAPENTIN
     Dosage: INCREASE DOSE UP TO 600 MG BY 100 MG EVERY 3 DAYS.
     Route: 048
  4. DELTASONE [Concomitant]
     Active Substance: PREDNISONE
     Route: 048
  5. DELTASONE [Concomitant]
     Active Substance: PREDNISONE
     Route: 048
  6. DELTASONE [Concomitant]
     Active Substance: PREDNISONE
     Route: 048
  7. BACTRIM DS [Concomitant]
     Active Substance: SULFAMETHOXAZOLE\TRIMETHOPRIM
     Dosage: ON MON, WED, AND FRI

REACTIONS (2)
  - Off label use [Unknown]
  - No adverse event [Unknown]
